FAERS Safety Report 22091648 (Version 1)
Quarter: 2023Q1

REPORT INFORMATION
  Report Type: Other
  Country: US (occurrence: None)
  Receive Date: 20230314
  Receipt Date: 20230314
  Transmission Date: 20230418
  Serious: Yes (Other)
  Sender: FDA-Public Use
  Company Number: US-ROCHE-3299067

PATIENT
  Age: 20 Year
  Sex: Male

DRUGS (1)
  1. OCREVUS [Suspect]
     Active Substance: OCRELIZUMAB
     Indication: Relapsing multiple sclerosis
     Dosage: DATE OF TREATMENT: 21/SEP/2022, 23/MAR/2022, 07/OCT/2021, 23/SEP/2021
     Route: 065

REACTIONS (2)
  - Hepatitis A [Unknown]
  - Hepatitis B [Unknown]
